FAERS Safety Report 7993718-5 (Version None)
Quarter: 2011Q4

REPORT INFORMATION
  Report Type: 
  Country: None (occurrence: None)
  Receive Date: 20111219
  Receipt Date: 20111209
  Transmission Date: 20120403
  Serious: Yes (Other)
  Sender: FDA-Public Use
  Company Number: US-ASTRAZENECA-2011SE74697

PATIENT
  Age: 52 Year
  Sex: Male
  Weight: 59 kg

DRUGS (13)
  1. SEROQUEL [Suspect]
     Indication: BIPOLAR I DISORDER
     Route: 048
     Dates: start: 20080101
  2. TRAMADOL HCL [Concomitant]
  3. VITAMIN C [Concomitant]
  4. IRON [Concomitant]
  5. FLUDROCORTISONE ACETATE [Concomitant]
     Dosage: TWO TIMES A DAY
  6. IMODIUM [Concomitant]
     Dosage: DAILY
  7. FIBERCON [Concomitant]
  8. OPIUM [Concomitant]
     Indication: PNEUMONIA
     Dosage: THREE TIMES A DAY
  9. VITAMIN B-12 [Concomitant]
  10. LEVOFLOXACIN [Concomitant]
     Indication: PNEUMONIA
  11. ADRENADOOSC [Concomitant]
     Indication: ADRENAL DISORDER
  12. CLONAZEPAM [Concomitant]
  13. HYDROCORTISONE [Concomitant]

REACTIONS (7)
  - LUNG INFECTION [None]
  - MANIA [None]
  - DRUG DOSE OMISSION [None]
  - ADRENAL INSUFFICIENCY [None]
  - PNEUMONIA [None]
  - COLON CANCER [None]
  - LUNG NEOPLASM MALIGNANT [None]
